FAERS Safety Report 5501928-1 (Version None)
Quarter: 2007Q4

REPORT INFORMATION
  Report Type: 
  Country: None (occurrence: None)
  Receive Date: 20071022
  Receipt Date: 20070807
  Transmission Date: 20080405
  Serious: No
  Sender: FDA-Public Use
  Company Number: SPV1-2007-03781

PATIENT
  Age: 12 Year
  Sex: Male
  Weight: 64.4 kg

DRUGS (3)
  1. VYVANSE [Suspect]
     Indication: ATTENTION DEFICIT/HYPERACTIVITY DISORDER
     Dosage: 30 MG, 1X/DAY:QD, ORAL
     Route: 048
     Dates: start: 20070806
  2. STRATTERA [Concomitant]
  3. MULTIVITAMIN (VITAMIN NOS) [Concomitant]

REACTIONS (1)
  - INSOMNIA [None]
